FAERS Safety Report 12694697 (Version 2)
Quarter: 2016Q4

REPORT INFORMATION
  Report Type: Spontaneous
  Country: SG (occurrence: SG)
  Receive Date: 20160829
  Receipt Date: 20161017
  Transmission Date: 20170207
  Serious: Yes (Hospitalization, Other)
  Sender: FDA-Public Use
  Company Number: SG-JNJFOC-20160807344

PATIENT
  Age: 44 Year
  Sex: Male

DRUGS (4)
  1. DURAGESIC [Suspect]
     Active Substance: FENTANYL
     Indication: PAIN
     Route: 062
     Dates: start: 20140703, end: 20140705
  2. NOVOSEVEN [Concomitant]
     Active Substance: COAGULATION FACTOR VIIA RECOMBINANT HUMAN
     Dosage: ON THE EVENING OF INJURY AND REPEATED ANOTHER DOSE THE FOLLOWING MORNING
     Route: 065
  3. NOVOSEVEN [Concomitant]
     Active Substance: COAGULATION FACTOR VIIA RECOMBINANT HUMAN
     Dosage: PRIOR TO ADMISSION AND ALSO RECEIVED FURTHER SEVEN DOSES
     Route: 065
  4. NOVOSEVEN [Concomitant]
     Active Substance: COAGULATION FACTOR VIIA RECOMBINANT HUMAN
     Dosage: ON THE EVENING OF INJURY AND REPEATED ANOTHER DOSE THE FOLLOWING MORNING
     Route: 065

REACTIONS (3)
  - Haemorrhage [Recovered/Resolved]
  - Subcutaneous haematoma [Recovered/Resolved]
  - Ecchymosis [Unknown]

NARRATIVE: CASE EVENT DATE: 20140705
